FAERS Safety Report 25688438 (Version 3)
Quarter: 2025Q3

REPORT INFORMATION
  Report Type: Report from Study
  Country: US (occurrence: US)
  Receive Date: 20250818
  Receipt Date: 20250918
  Transmission Date: 20251021
  Serious: Yes (Hospitalization, Other)
  Sender: TAKEDA
  Company Number: US-TAKEDA-2025TUS018049

PATIENT
  Age: 71 Year
  Sex: Male
  Weight: 68 kg

DRUGS (2)
  1. .ALPHA.1-PROTEINASE INHIBITOR HUMAN [Suspect]
     Active Substance: .ALPHA.1-PROTEINASE INHIBITOR HUMAN
     Indication: Alpha-1 antitrypsin deficiency
     Dosage: 60 MILLIGRAM/KILOGRAM 1/WEEK
  2. .ALPHA.1-PROTEINASE INHIBITOR HUMAN [Suspect]
     Active Substance: .ALPHA.1-PROTEINASE INHIBITOR HUMAN

REACTIONS (4)
  - Nephrolithiasis [Unknown]
  - Oxygen saturation decreased [Unknown]
  - Infection [Unknown]
  - Procedural pain [Unknown]
